FAERS Safety Report 4555153-1 (Version None)
Quarter: 2005Q1

REPORT INFORMATION
  Report Type: 
  Country: None (occurrence: None)
  Receive Date: 20050118
  Receipt Date: 20050106
  Transmission Date: 20050727
  Serious: Yes (Death, Hospitalization)
  Sender: FDA-Public Use
  Company Number: FR-MERCK-0501FRA00033

PATIENT
  Age: 79 Year
  Sex: Male

DRUGS (4)
  1. STROMECTOL [Suspect]
     Indication: STRONGYLOIDIASIS
     Route: 048
  2. ALBENDAZOLE [Concomitant]
     Indication: STRONGYLOIDIASIS
     Route: 048
  3. DIURETIC (UNSPECIFIED) [Concomitant]
     Indication: CARDIAC FAILURE
     Route: 065
  4. [THERAPY UNSPECIFIED] [Concomitant]
     Indication: ATRIAL FIBRILLATION
     Route: 065

REACTIONS (8)
  - BRONCHOSPASM [None]
  - CARDIAC FAILURE [None]
  - CONDITION AGGRAVATED [None]
  - MULTI-ORGAN FAILURE [None]
  - RENAL FAILURE [None]
  - RESPIRATORY FAILURE [None]
  - RESTRICTIVE CARDIOMYOPATHY [None]
  - STRONGYLOIDIASIS [None]
